FAERS Safety Report 5890100-1 (Version None)
Quarter: 2008Q3

REPORT INFORMATION
  Report Type: 
  Country: None (occurrence: None)
  Receive Date: 20080919
  Receipt Date: 20080902
  Transmission Date: 20090109
  Serious: No
  Sender: FDA-Public Use
  Company Number: US-B.I. PHARMACEUTICALS,INC./RIDGEFIELD-2008-BP-13956BP

PATIENT
  Age: 57 Year
  Sex: Female

DRUGS (4)
  1. MOBIC [Suspect]
     Indication: ARTHRALGIA
     Dosage: 15MG
     Route: 048
     Dates: start: 20080816, end: 20080827
  2. MOBIC [Suspect]
     Indication: INFLAMMATION
  3. CALCIUM GLUCONATE [Concomitant]
  4. SYNTHROID [Concomitant]
     Indication: HYPOTHYROIDISM

REACTIONS (4)
  - DIARRHOEA [None]
  - MOUTH ULCERATION [None]
  - THROAT LESION [None]
  - URTICARIA [None]
